FAERS Safety Report 8511137-X (Version None)
Quarter: 2012Q3

REPORT INFORMATION
  Report Type: 
  Country: None (occurrence: None)
  Receive Date: 20120716
  Receipt Date: 20120702
  Transmission Date: 20120928
  Serious: Yes (Other)
  Sender: FDA-Public Use
  Company Number: JP-UCBSA-059754

PATIENT
  Age: 39 Year
  Sex: Male
  Weight: 53.9 kg

DRUGS (9)
  1. KEPPRA [Suspect]
     Route: 048
     Dates: start: 20120525, end: 20120604
  2. MIYA BM [Concomitant]
     Dosage: DAILY DOSE: 18 DF
     Route: 048
  3. SODIUM BENZOATE [Concomitant]
     Dosage: DAILY DOSE: 18 GM
     Route: 048
  4. JUVELA N [Concomitant]
     Dosage: DAILY DOSE: 100 MG
     Route: 048
  5. KEPPRA [Suspect]
     Indication: EPILEPSY
     Route: 048
     Dates: start: 20120514, end: 20120524
  6. ARGI-U [Concomitant]
     Dosage: DAILY DOSE: 45 GM
     Route: 048
  7. FAMOTIDINE [Concomitant]
     Dosage: DAILY DOSE: 40 MG
     Route: 048
  8. PHENYTOIN SODIUM CAP [Concomitant]
     Dosage: DAILY DOSE: 500 MG
     Route: 048
     Dates: start: 20120529, end: 20120531
  9. TEGRETOL [Concomitant]
     Dosage: DAILY DOSE: 600 MG
     Route: 048

REACTIONS (3)
  - CEREBELLAR ATAXIA [None]
  - RHABDOMYOLYSIS [None]
  - GRAND MAL CONVULSION [None]
